FAERS Safety Report 10470078 (Version 1)
Quarter: 2014Q3

REPORT INFORMATION
  Report Type: Spontaneous
  Country: US (occurrence: US)
  Receive Date: 20140923
  Receipt Date: 20140923
  Transmission Date: 20150326
  Serious: No
  Sender: FDA-Public Use
  Company Number: US-PFIZER INC-2014261708

PATIENT
  Sex: Female

DRUGS (1)
  1. XELJANZ [Suspect]
     Active Substance: TOFACITINIB CITRATE
     Dosage: UNK

REACTIONS (7)
  - Diarrhoea [Unknown]
  - Night sweats [Unknown]
  - Alopecia [Unknown]
  - Vomiting [Unknown]
  - Rash [Unknown]
  - Nausea [Unknown]
  - Cold sweat [Unknown]
